FAERS Safety Report 16143074 (Version 1)
Quarter: 2019Q2

REPORT INFORMATION
  Report Type: Spontaneous
  Country: GB (occurrence: GB)
  Receive Date: 20190401
  Receipt Date: 20190401
  Transmission Date: 20190711
  Serious: Yes (Other)
  Sender: FDA-Public Use
  Company Number: GB-MYLANLABS-2019M1028652

PATIENT
  Age: 63 Year
  Sex: Male

DRUGS (10)
  1. ATORVASTATIN [Concomitant]
     Active Substance: ATORVASTATIN
     Dosage: 1 DOSAGE FORM, QD
     Dates: start: 20171020
  2. MOMETASONE [Concomitant]
     Active Substance: MOMETASONE
     Dosage: 4 DOSAGE FORM, QD
     Route: 045
     Dates: start: 20180806, end: 20180910
  3. TESTOSTERONE. [Concomitant]
     Active Substance: TESTOSTERONE
     Dosage: APPLY
     Dates: start: 20180427
  4. CETIRIZINE [Concomitant]
     Active Substance: CETIRIZINE HYDROCHLORIDE
     Dosage: UNK UNK, PRN (UP TO 4 DAILY)
     Dates: start: 20180806, end: 20180821
  5. BISOPROLOL [Concomitant]
     Active Substance: BISOPROLOL
     Dosage: MORNING
     Dates: start: 20180716
  6. FINASTERIDE. [Concomitant]
     Active Substance: FINASTERIDE
     Dosage: UNK UNK, QD (TAKE QUARTER OF A TABLET DAILY)
     Dates: start: 20180425
  7. AMLODIPINE [Suspect]
     Active Substance: AMLODIPINE BESYLATE
     Indication: PRODUCT USED FOR UNKNOWN INDICATION
     Dosage: MORNING
     Dates: start: 20180716
  8. ACETYLSALICYLIC ACID [Concomitant]
     Active Substance: ASPIRIN
     Dosage: 1 DOSAGE FORM, QD
     Dates: start: 20180618
  9. OMEPRAZOLE. [Concomitant]
     Active Substance: OMEPRAZOLE
     Dosage: WHILST TAKING ASPIRIN
     Dates: start: 20180618
  10. GLYCERYL TRINITRATE [Concomitant]
     Active Substance: NITROGLYCERIN
     Dosage: PUFF
     Route: 060
     Dates: start: 20180618

REACTIONS (1)
  - Swollen tongue [Recovered/Resolved]

NARRATIVE: CASE EVENT DATE: 20180910
